FAERS Safety Report 6068884-1 (Version None)
Quarter: 2009Q1

REPORT INFORMATION
  Report Type: 
  Country: None (occurrence: None)
  Receive Date: 20090206
  Receipt Date: 20090129
  Transmission Date: 20090719
  Serious: Yes (Hospitalization)
  Sender: FDA-Public Use
  Company Number: US-PFIZER INC-2009165587

PATIENT
  Age: 64 Year
  Sex: Male

DRUGS (2)
  1. IRINOTECAN HCL [Suspect]
     Dosage: 100 MG/M2, ON DAYS 1 + 8 EVERY 21 DAYS
     Route: 042
     Dates: start: 20080709, end: 20080806
  2. INVESTIGATIONAL DRUG [Suspect]
     Indication: OESOPHAGEAL CARCINOMA
     Dosage: 10 MG CYCLIC
     Route: 048
     Dates: start: 20080709, end: 20080812

REACTIONS (2)
  - ASPIRATION [None]
  - LEUKOPENIA [None]
